FAERS Safety Report 6556410-X (Version None)
Quarter: 2010Q1

REPORT INFORMATION
  Report Type: 
  Country: None (occurrence: None)
  Receive Date: 20100128
  Receipt Date: 20100125
  Transmission Date: 20100710
  Serious: Yes (Disabling)
  Sender: FDA-Public Use
  Company Number: A0841703A

PATIENT
  Sex: Female

DRUGS (9)
  1. LOVAZA [Suspect]
     Dosage: 6G PER DAY
     Route: 048
     Dates: start: 20080101
  2. METOPROLOL [Concomitant]
     Route: 048
  3. LASIX [Concomitant]
     Route: 048
  4. MECLIZINE [Concomitant]
  5. MULTI-VITAMIN [Concomitant]
  6. LORAZEPAM [Concomitant]
  7. DIAZEPAM [Concomitant]
  8. GLUCOPHAGE [Concomitant]
  9. PEPCID [Concomitant]

REACTIONS (6)
  - DIARRHOEA [None]
  - DRUG ADMINISTRATION ERROR [None]
  - DYSGEUSIA [None]
  - DYSPHAGIA [None]
  - ERUCTATION [None]
  - LIPIDS INCREASED [None]
